FAERS Safety Report 4356583-3 (Version None)
Quarter: 2004Q2

REPORT INFORMATION
  Report Type: 
  Country: None (occurrence: None)
  Receive Date: 20040510
  Receipt Date: 20040510
  Transmission Date: 20050107
  Serious: Yes (Other)
  Sender: FDA-Public Use
  Company Number: None

PATIENT
  Age: 55 Year
  Sex: Female
  Weight: 108.8633 kg

DRUGS (4)
  1. TRAMADOL HCL [Suspect]
     Indication: SPONDYLOLYSIS
     Dosage: 50 MG 4 TIMES ORAL
     Route: 048
     Dates: start: 20020710, end: 20040310
  2. TRAMADOL HCL [Suspect]
     Indication: SPONDYLOLYSIS
     Dosage: 50 MG 4 TIMES ORAL
     Route: 048
     Dates: start: 20040201, end: 20040310
  3. IBUPROFEN [Concomitant]
  4. METHOCARBAMOL [Concomitant]

REACTIONS (2)
  - DRUG EFFECT DECREASED [None]
  - PHARMACEUTICAL PRODUCT COMPLAINT [None]
